FAERS Safety Report 24942897 (Version 1)
Quarter: 2025Q1

REPORT INFORMATION
  Report Type: Spontaneous
  Country: DE (occurrence: DE)
  Receive Date: 20250207
  Receipt Date: 20250207
  Transmission Date: 20250409
  Serious: Yes (Hospitalization)
  Sender: PFIZER
  Company Number: DE-ROCHE-10000173218

PATIENT
  Age: 78 Year
  Sex: Male
  Weight: 97 kg

DRUGS (34)
  1. BEVACIZUMAB [Suspect]
     Active Substance: BEVACIZUMAB
     Indication: Hepatocellular carcinoma
     Dosage: 1530 MG, EVERY 3 WEEKS
     Route: 042
     Dates: start: 20240321
  2. BEVACIZUMAB [Suspect]
     Active Substance: BEVACIZUMAB
     Dosage: 1455 MG, EVERY 3 WEEKS (MOST RECENT DOSE OF STUDY DRUG PRIOR TO AE/SAE)
     Route: 042
     Dates: start: 20241219
  3. TIRAGOLUMAB [Concomitant]
     Active Substance: TIRAGOLUMAB
     Indication: Hepatocellular carcinoma
     Dosage: UNK, EVERY 3 WEEKS
     Route: 042
     Dates: start: 20240321
  4. TIRAGOLUMAB [Concomitant]
     Active Substance: TIRAGOLUMAB
     Route: 042
     Dates: start: 20241219
  5. ATEZOLIZUMAB [Concomitant]
     Active Substance: ATEZOLIZUMAB
     Indication: Hepatocellular carcinoma
     Dosage: 1200 MG, EVERY 3 WEEKS
     Route: 042
     Dates: start: 20240321
  6. ATEZOLIZUMAB [Concomitant]
     Active Substance: ATEZOLIZUMAB
     Route: 042
     Dates: start: 20241219
  7. FUROSEMIDE [Concomitant]
     Active Substance: FUROSEMIDE
     Dosage: 40 MG, 1X/DAY
     Route: 048
     Dates: start: 2004, end: 20250103
  8. SITAGLIPTINE [SITAGLIPTIN HYDROCHLORIDE HYDRATE] [Concomitant]
     Dosage: 50 MG, 2X/DAY
     Route: 048
     Dates: start: 1994, end: 20250103
  9. SITAGLIPTINE [SITAGLIPTIN HYDROCHLORIDE HYDRATE] [Concomitant]
     Dosage: 50 MG, 2X/DAY
     Route: 048
     Dates: start: 20250114
  10. METFORMIN HYDROCHLORIDE [Concomitant]
     Active Substance: METFORMIN HYDROCHLORIDE
     Dosage: 1000 MG, 2X/DAY
     Route: 048
     Dates: start: 1994, end: 20250103
  11. METFORMIN HYDROCHLORIDE [Concomitant]
     Active Substance: METFORMIN HYDROCHLORIDE
     Dosage: 1000 MG, 2X/DAY
     Route: 048
     Dates: start: 20250114
  12. SOLIFENACIN SUCCINATE [Concomitant]
     Active Substance: SOLIFENACIN SUCCINATE
     Dosage: 5 MG, 1X/DAY
     Route: 048
     Dates: start: 1999, end: 20250103
  13. SOLIFENACIN SUCCINATE [Concomitant]
     Active Substance: SOLIFENACIN SUCCINATE
     Dosage: 5 MG, 1X/DAY
     Route: 048
     Dates: start: 20250113
  14. AMLODIPINE [Concomitant]
     Active Substance: AMLODIPINE BESYLATE
     Dosage: 5 MG, 1X/DAY
     Route: 048
     Dates: start: 20240318, end: 20250103
  15. AMLODIPINE [Concomitant]
     Active Substance: AMLODIPINE BESYLATE
     Dosage: 5 MG, 1X/DAY
     Route: 048
     Dates: start: 20250107, end: 20250107
  16. AMLODIPINE [Concomitant]
     Active Substance: AMLODIPINE BESYLATE
     Dosage: 5 MG, 1X/DAY
     Route: 048
     Dates: start: 20250114
  17. VALSARTAN [Concomitant]
     Active Substance: VALSARTAN
     Dosage: 80 MG, 1X/DAY
     Route: 048
     Dates: start: 20240318, end: 20250103
  18. VALSARTAN [Concomitant]
     Active Substance: VALSARTAN
     Dosage: 80 MG, 1X/DAY
     Route: 048
     Dates: start: 20250114
  19. HYDROCHLOROTHIAZIDE [Concomitant]
     Active Substance: HYDROCHLOROTHIAZIDE
     Indication: Bone marrow oedema
     Dosage: 12.5 MG, 1X/DAY
     Route: 048
     Dates: start: 20240410, end: 20250103
  20. HYDROCHLOROTHIAZIDE [Concomitant]
     Active Substance: HYDROCHLOROTHIAZIDE
     Dosage: 12.5 MG, 1X/DAY
     Route: 048
     Dates: start: 20250114
  21. LOPERAMIDE HYDROCHLORIDE [Concomitant]
     Active Substance: LOPERAMIDE HYDROCHLORIDE
     Indication: Diarrhoea
     Route: 048
     Dates: start: 20240513
  22. CHLORHEXIDINE HYDROCHLORIDE\DEXAMETHASONE\NYSTATIN [Concomitant]
     Active Substance: CHLORHEXIDINE HYDROCHLORIDE\DEXAMETHASONE\NYSTATIN
     Indication: Prophylaxis
     Route: 062
     Dates: start: 20240704
  23. CLEMASTINE [Concomitant]
     Active Substance: CLEMASTINE
     Indication: Rash
     Dosage: 1.34 MG, 1X/DAY
     Route: 048
     Dates: start: 20240724
  24. TACE [CHLOROTRIANISENE] [Concomitant]
     Indication: Neoplasm malignant
     Dates: start: 20191206
  25. TACE [CHLOROTRIANISENE] [Concomitant]
     Dates: start: 20200107
  26. TACE [CHLOROTRIANISENE] [Concomitant]
     Dates: start: 20200520
  27. INNOHEP [Concomitant]
     Active Substance: TINZAPARIN SODIUM
     Dosage: 4500 IU, 1X/DAY
     Route: 058
     Dates: start: 20250103, end: 20250105
  28. INNOHEP [Concomitant]
     Active Substance: TINZAPARIN SODIUM
     Dosage: 4500 IU, 2X/DAY
     Route: 058
     Dates: start: 20250107, end: 20250107
  29. INNOHEP [Concomitant]
     Active Substance: TINZAPARIN SODIUM
     Dosage: 4500 IU, 1X/DAY
     Route: 058
     Dates: start: 20250108, end: 20250112
  30. PANTOPRAZOLE [Concomitant]
     Active Substance: PANTOPRAZOLE
     Dosage: 40 MG, 1X/DAY
     Route: 048
     Dates: start: 20250106, end: 20250106
  31. BISOPROLOL [Concomitant]
     Active Substance: BISOPROLOL
     Dosage: 10 MG, 1X/DAY
     Route: 048
     Dates: start: 20250107, end: 20250107
  32. BISOPROLOL [Concomitant]
     Active Substance: BISOPROLOL
     Dosage: 10 MG, 1X/DAY
     Route: 048
     Dates: start: 20250114
  33. FRESUBIN ENERGY [CARBOHYDRATES NOS;FATS NOS;MINERALS NOS;PROTEINS NOS; [Concomitant]
     Indication: Weight decreased
     Dosage: 200 ML, 1X/DAY
     Route: 048
     Dates: start: 20240510, end: 20250103
  34. SODIUM PICOSULFATE [Concomitant]
     Active Substance: SODIUM PICOSULFATE
     Dosage: 7.5 MG, 1X/DAY (DOSE: OTHER)
     Route: 048
     Dates: start: 20250107, end: 20250107

REACTIONS (2)
  - Sepsis [Recovered/Resolved]
  - Off label use [Unknown]

NARRATIVE: CASE EVENT DATE: 20240321
